FAERS Safety Report 14045786 (Version 4)
Quarter: 2018Q4

REPORT INFORMATION
  Report Type: Spontaneous
  Country: US (occurrence: US)
  Receive Date: 20171005
  Receipt Date: 20181224
  Transmission Date: 20190204
  Serious: Yes (Life-Threatening, Hospitalization, Other)
  Sender: FDA-Public Use
  Company Number: US-009507513-1204USA04505

PATIENT
  Age: 76 Year
  Sex: Female
  Weight: 58.97 kg

DRUGS (7)
  1. XALATAN [Suspect]
     Active Substance: LATANOPROST
     Indication: GLAUCOMA
     Dosage: ONE DROP IN EACH EYE (2 GTT)
     Route: 047
     Dates: start: 2003
  2. TRUSOPT [Suspect]
     Active Substance: DORZOLAMIDE HYDROCHLORIDE
     Indication: GLAUCOMA
     Route: 047
  3. PILOCARPINE. [Suspect]
     Active Substance: PILOCARPINE
     Indication: GLAUCOMA
     Dosage: UNK
  4. COZAAR [Concomitant]
     Active Substance: LOSARTAN POTASSIUM
     Indication: PRODUCT USED FOR UNKNOWN INDICATION
     Route: 048
  5. AMLODIPINE [Concomitant]
     Active Substance: AMLODIPINE BESYLATE
     Indication: PRODUCT USED FOR UNKNOWN INDICATION
     Dosage: UNK
     Dates: start: 2014
  6. LUMIGAN [Suspect]
     Active Substance: BIMATOPROST
     Indication: GLAUCOMA
     Dosage: UNK, QD
  7. TIMOPTIC [Suspect]
     Active Substance: TIMOLOL MALEATE
     Indication: GLAUCOMA
     Dosage: 5 TIMES PER DAY
     Route: 047

REACTIONS (31)
  - Mental impairment [Not Recovered/Not Resolved]
  - Dyspnoea [Recovering/Resolving]
  - Influenza [Unknown]
  - Dyspnoea [Not Recovered/Not Resolved]
  - Tinnitus [Recovered/Resolved]
  - Tooth extraction [Not Recovered/Not Resolved]
  - Visual impairment [Unknown]
  - Dizziness [Not Recovered/Not Resolved]
  - Muscle spasms [Recovering/Resolving]
  - Hyperthyroidism [Not Recovered/Not Resolved]
  - Intraocular pressure increased [Not Recovered/Not Resolved]
  - Fear [Recovered/Resolved]
  - Weight decreased [Recovered/Resolved]
  - Infection [Unknown]
  - Medication error [Recovered/Resolved]
  - Growth of eyelashes [Recovered/Resolved]
  - Hypersensitivity [Not Recovered/Not Resolved]
  - Emphysema [Not Recovered/Not Resolved]
  - Thyroid disorder [Recovered/Resolved]
  - Chest discomfort [Not Recovered/Not Resolved]
  - Confusional state [Not Recovered/Not Resolved]
  - Body height decreased [Not Recovered/Not Resolved]
  - Alopecia [Not Recovered/Not Resolved]
  - Reading disorder [Not Recovered/Not Resolved]
  - Blindness [Unknown]
  - Paralysis [Recovered/Resolved]
  - Eyelid irritation [Not Recovered/Not Resolved]
  - Eyelid disorder [Recovered/Resolved]
  - Dysgraphia [Recovered/Resolved]
  - Cataract [Not Recovered/Not Resolved]
  - Visual acuity reduced [Recovered/Resolved]

NARRATIVE: CASE EVENT DATE: 201709
